FAERS Safety Report 25957627 (Version 4)
Quarter: 2025Q4

REPORT INFORMATION
  Report Type: Spontaneous
  Country: TH (occurrence: TH)
  Receive Date: 20251024
  Receipt Date: 20251214
  Transmission Date: 20260117
  Serious: Yes (Hospitalization, Other)
  Sender: IPSEN BIOPHARMACEUTICALS, INC.
  Company Number: TH-SERVIER-S25015241

PATIENT
  Age: 72 Year
  Sex: Male

DRUGS (1)
  1. ONIVYDE [Suspect]
     Active Substance: IRINOTECAN HYDROCHLORIDE
     Indication: Product used for unknown indication
     Dosage: CONCENTRATE FOR DISPERSION FOR INFUSION

REACTIONS (7)
  - Cholera [Recovered/Resolved]
  - Sepsis [Not Recovered/Not Resolved]
  - Intra-abdominal haemorrhage [Recovered/Resolved]
  - Lung abscess [Not Recovered/Not Resolved]
  - Pseudomonas infection [Not Recovered/Not Resolved]
  - Abdominal pain upper [Unknown]
  - Hepatic mass [Unknown]

NARRATIVE: CASE EVENT DATE: 20250929
